APPROVED DRUG PRODUCT: FASTIN
Active Ingredient: PHENTERMINE HYDROCHLORIDE
Strength: 30MG **Federal Register determination that product was not discontinued or withdrawn for safety or effectiveness reasons**
Dosage Form/Route: CAPSULE;ORAL
Application: N017352 | Product #001
Applicant: GLAXOSMITHKLINE
Approved: Approved Prior to Jan 1, 1982 | RLD: No | RS: No | Type: DISCN